FAERS Safety Report 12620267 (Version 2)
Quarter: 2016Q3

REPORT INFORMATION
  Report Type: Spontaneous
  Country: IT (occurrence: IT)
  Receive Date: 20160803
  Receipt Date: 20160808
  Transmission Date: 20161109
  Serious: Yes (Other)
  Sender: FDA-Public Use
  Company Number: IT-TEVA-680368ACC

PATIENT
  Age: 62 Year
  Sex: Female
  Weight: 60 kg

DRUGS (12)
  1. TENORMIN - 100 MG COMPRESSE - ASTRAZE NECA S.P.A. [Concomitant]
     Indication: HYPERTENSION
     Dosage: 100 MG
     Route: 048
  2. FLUOROURACILE AHCL - ACCORD HEALTHCARE LIMITED [Suspect]
     Active Substance: FLUOROURACIL
     Indication: COLON CANCER
     Dosage: 636 MG CYCLICAL
     Route: 040
     Dates: start: 20160513, end: 20160513
  3. CALCIO LEVOFOLINATO TEVA - 100 MG POLVERE PER SOLUZIONE PER INFUSIONE [Suspect]
     Active Substance: LEVOLEUCOVORIN CALCIUM
     Indication: COLON CANCER
     Dosage: 318 MG CYCLICAL
     Route: 042
     Dates: start: 20160513, end: 20160513
  4. VECTIBIX [Suspect]
     Active Substance: PANITUMUMAB
     Indication: COLON CANCER
     Dosage: 336 MG CYCLICAL
     Route: 042
     Dates: start: 20160513, end: 20160513
  5. SOLDESAM - 8 MG/2 ML SOLUZIONE INIETTABILE - LABORATORIO FARMACOLOGICO [Concomitant]
     Indication: PREMEDICATION
     Dosage: 8 MG
     Route: 042
     Dates: start: 20160513, end: 20160513
  6. GRANISETRON KABI - FRESENIUS KABI ITALIA S.R.L. [Concomitant]
     Indication: PREMEDICATION
     Dosage: 8 MG
     Route: 042
     Dates: start: 20160513, end: 20160513
  7. OXALIPLATINO ACCORD - 5 MG/ML CONCENTRATO PER SOLUZIONE PER INFUSIONE [Suspect]
     Active Substance: OXALIPLATIN
     Indication: COLON CANCER
     Dosage: 135.2 MG CYCLICAL
     Route: 042
     Dates: start: 20160513, end: 20160513
  8. FLUOROURACILE AHCL - 50MG/ML SOLUZIONE INIETTABILE O INFUSIONE [Suspect]
     Active Substance: FLUOROURACIL
     Indication: COLON CANCER
     Dosage: 3816 MG CYCLICAL
     Route: 041
     Dates: start: 20160513, end: 20160513
  9. REVOLADE - 50 MG COMPRESSA RIVESTITA CON FILM - NOVARTIS EUROPHARM LTD [Concomitant]
     Indication: THROMBOCYTOPENIA
     Dosage: 50 MG
     Route: 048
  10. RANIDIL - 50 MG/5 ML SOLUZIONE INIETTABILE - A.MENARINI INDUSTRIE FARM [Concomitant]
     Indication: PREMEDICATION
     Dosage: 50 MG
     Route: 042
     Dates: start: 20160513, end: 20160513
  11. NOVONORM - 0,5 MG COMPRESSE NOVO - NORDISK A/S [Concomitant]
     Indication: DIABETES MELLITUS
     Dosage: .5 MG
     Route: 048
  12. CYMBALTA - 30 MG CAPSULE RIGIDE GASTRORESISTENTI - ELI LILLY NEDERLAND [Concomitant]
     Indication: DEPRESSION
     Dosage: 30 MG
     Route: 048

REACTIONS (1)
  - Rash [Not Recovered/Not Resolved]

NARRATIVE: CASE EVENT DATE: 20160513
